FAERS Safety Report 15966160 (Version 1)
Quarter: 2019Q1

REPORT INFORMATION
  Report Type: Spontaneous
  Country: US (occurrence: US)
  Receive Date: 20190214
  Receipt Date: 20190214
  Transmission Date: 20190418
  Serious: Yes (Other)
  Sender: FDA-Public Use
  Company Number: None

PATIENT
  Age: 66 Year
  Sex: Female
  Weight: 58.5 kg

DRUGS (14)
  1. CHERATUSSIN [Concomitant]
     Active Substance: AMMONIUM CHLORIDE\DEXTROMETHORPHAN\SODIUM CITRATE
  2. LATANOPROST. [Concomitant]
     Active Substance: LATANOPROST
  3. VENTOLIN HFA [Concomitant]
     Active Substance: ALBUTEROL SULFATE
  4. CALCIUM 500/VITAMIN D [Concomitant]
  5. PREDNISONE. [Concomitant]
     Active Substance: PREDNISONE
  6. TARCEVA [Suspect]
     Active Substance: ERLOTINIB HYDROCHLORIDE
     Indication: LUNG NEOPLASM MALIGNANT
     Route: 048
     Dates: start: 20190130
  7. DIFLUCAN [Concomitant]
     Active Substance: FLUCONAZOLE
  8. CLINDAMYCIN PHOSPHATE. [Concomitant]
     Active Substance: CLINDAMYCIN PHOSPHATE
  9. COD LIVER OIL [Concomitant]
     Active Substance: COD LIVER OIL
  10. HYDROCORTISONE. [Concomitant]
     Active Substance: HYDROCORTISONE
  11. MULTIVITAMINS [Concomitant]
     Active Substance: VITAMINS
  12. LEVOTHYROXINE SODIUM. [Concomitant]
     Active Substance: LEVOTHYROXINE SODIUM
  13. ATIVAN [Concomitant]
     Active Substance: LORAZEPAM
  14. PREMARIN [Concomitant]
     Active Substance: ESTROGENS, CONJUGATED

REACTIONS (4)
  - Acne [None]
  - Diarrhoea [None]
  - Rash [None]
  - Decreased appetite [None]
